FAERS Safety Report 10224452 (Version 1)
Quarter: 2014Q2

REPORT INFORMATION
  Report Type: Spontaneous
  Country: JP (occurrence: JP)
  Receive Date: 20140609
  Receipt Date: 20140609
  Transmission Date: 20141212
  Serious: Yes (Death, Life-Threatening, Hospitalization)
  Sender: FDA-Public Use
  Company Number: JP-SA-2014SA073501

PATIENT
  Age: 9 Year
  Sex: Male
  Weight: 27 kg

DRUGS (15)
  1. FLUDARA [Suspect]
     Indication: NON-HODGKIN^S LYMPHOMA
     Route: 065
     Dates: start: 20120717, end: 20120721
  2. THYMOGLOBULINE [Suspect]
     Indication: BONE MARROW CONDITIONING REGIMEN
     Route: 042
     Dates: start: 20120719, end: 20120722
  3. BUSULFEX [Suspect]
     Indication: NON-HODGKIN^S LYMPHOMA
     Route: 065
     Dates: start: 20120718, end: 20120722
  4. SOLDEM 3A [Concomitant]
     Dates: start: 20120716, end: 20120923
  5. FRAGMIN [Concomitant]
     Indication: PROPHYLAXIS
     Dates: start: 20120719, end: 20120719
  6. KAYTWO N [Concomitant]
     Indication: PROPHYLAXIS
     Dates: start: 20120720, end: 20120722
  7. GRANISETRON [Concomitant]
     Indication: PROPHYLAXIS
     Dates: start: 20120717, end: 20120722
  8. NORMAL SALINE [Concomitant]
     Indication: PRODUCT SOLUBILITY ABNORMAL
     Dates: start: 20120718, end: 20120801
  9. HEPARIN/ANTITHROMBIN III/FACTOR X (STUART PROWER FACTOR)/FACTOR IX/FACTOR II (PROTHROMBIN)/PLASMA PR [Concomitant]
     Indication: PROPHYLAXIS
     Dates: start: 20120722, end: 20120722
  10. HEPAFLUSH [Concomitant]
     Dates: start: 20120723
  11. SOLACET D [Concomitant]
     Dates: start: 20120722, end: 20120723
  12. FAMOTIDINE [Concomitant]
     Indication: PROPHYLAXIS
     Dates: start: 20120717, end: 20120724
  13. FENTANYL [Concomitant]
     Dates: start: 20120720, end: 20120724
  14. FLUCONAZOLE [Concomitant]
     Indication: INFECTION PROPHYLAXIS
     Dates: start: 20120717, end: 20120726
  15. SOL-MELCORT [Concomitant]
     Indication: PROPHYLAXIS
     Dates: start: 20120719, end: 20120730

REACTIONS (6)
  - Respiratory disorder [Fatal]
  - Cytokine storm [Unknown]
  - Pseudomonal sepsis [Recovering/Resolving]
  - Sepsis [Unknown]
  - Human herpesvirus 6 infection [Recovered/Resolved]
  - Stomatitis [Recovered/Resolved]
